FAERS Safety Report 9421807 (Version 3)
Quarter: 2014Q1

REPORT INFORMATION
  Report Type: Spontaneous
  Country: ES (occurrence: ES)
  Receive Date: 20130726
  Receipt Date: 20140107
  Transmission Date: 20141002
  Serious: Yes (Death, Hospitalization, Other)
  Sender: FDA-Public Use
  Company Number: ES-BRISTOL-MYERS SQUIBB COMPANY-19113729

PATIENT
  Sex: Female

DRUGS (3)
  1. YERVOY [Suspect]
     Indication: ACRAL LENTIGINOUS MELANOMA
     Dosage: INJECTION..?THIRD:17JUL2013
     Dates: start: 20130531
  2. IBUPROFEN [Concomitant]
  3. FUROSEMIDE [Concomitant]
     Dosage: TABS

REACTIONS (4)
  - Death [Fatal]
  - Generalised oedema [Recovered/Resolved]
  - Pleural effusion [Unknown]
  - Pericardial effusion [Unknown]
